FAERS Safety Report 18624788 (Version 4)
Quarter: 2021Q2

REPORT INFORMATION
  Report Type: Spontaneous
  Country: JP (occurrence: JP)
  Receive Date: 20201216
  Receipt Date: 20210528
  Transmission Date: 20210717
  Serious: Yes (Hospitalization, Other)
  Sender: FDA-Public Use
  Company Number: JP-JNJFOC-A-CH2020-202138

PATIENT
  Age: 41 Year
  Sex: Female
  Weight: 48 kg

DRUGS (8)
  1. CAPTOPRIL. [Concomitant]
     Active Substance: CAPTOPRIL
     Indication: CARDIAC FAILURE CHRONIC
     Route: 048
     Dates: start: 1996, end: 20160302
  2. TRACLEER [Suspect]
     Active Substance: BOSENTAN
     Indication: PULMONARY ARTERIAL HYPERTENSION
     Dosage: 130MG/MORNING, 62.5MG/EVENING
     Route: 048
     Dates: start: 200706, end: 20160302
  3. FLOLAN [Suspect]
     Active Substance: EPOPROSTENOL SODIUM
     Indication: PULMONARY ARTERIAL HYPERTENSION
     Route: 065
  4. UPTRAVI [Suspect]
     Active Substance: SELEXIPAG
     Indication: PULMONARY ARTERIAL HYPERTENSION
     Route: 048
  5. OXYGEN. [Concomitant]
     Active Substance: OXYGEN
  6. OXYGEN. [Concomitant]
     Active Substance: OXYGEN
  7. OPSUMIT [Suspect]
     Active Substance: MACITENTAN
     Indication: PULMONARY ARTERIAL HYPERTENSION
     Route: 048
     Dates: start: 20160303
  8. RIOCIGUAT. [Suspect]
     Active Substance: RIOCIGUAT
     Indication: PULMONARY ARTERIAL HYPERTENSION
     Route: 048

REACTIONS (8)
  - Hypoxia [Recovering/Resolving]
  - Cyanosis [Recovered/Resolved]
  - Pulmonary arterial pressure increased [Unknown]
  - Clubbing [Unknown]
  - Pulmonary artery dilatation [Unknown]
  - Haemoptysis [Recovered/Resolved]
  - Pulmonary artery banding [Unknown]
  - Right ventricular hypertrophy [Unknown]

NARRATIVE: CASE EVENT DATE: 20160101
